FAERS Safety Report 23671725 (Version 1)
Quarter: 2024Q1

REPORT INFORMATION
  Report Type: Report from Study
  Country: US (occurrence: US)
  Receive Date: 20240326
  Receipt Date: 20240326
  Transmission Date: 20240410
  Serious: No
  Sender: FDA-Public Use
  Company Number: US-BIOGEN-2024BI01256133

PATIENT
  Sex: Female

DRUGS (1)
  1. ZURZUVAE [Suspect]
     Active Substance: ZURANOLONE
     Indication: Perinatal depression
     Route: 050

REACTIONS (6)
  - Muscle spasms [Unknown]
  - Brain fog [Unknown]
  - Dehydration [Unknown]
  - Paraesthesia [Unknown]
  - Paraesthesia oral [Unknown]
  - Diarrhoea [Unknown]
